FAERS Safety Report 5673630-7 (Version None)
Quarter: 2008Q1

REPORT INFORMATION
  Report Type: 
  Country: None (occurrence: None)
  Receive Date: 20080319
  Receipt Date: 20080310
  Transmission Date: 20080703
  Serious: Yes (Hospitalization)
  Sender: FDA-Public Use
  Company Number: VE-PFIZER INC-2008018365

PATIENT
  Sex: Male
  Weight: 76 kg

DRUGS (13)
  1. SUTENT [Suspect]
     Indication: RENAL CANCER METASTATIC
     Route: 048
  2. OMEPRAZOLE [Concomitant]
     Route: 048
     Dates: start: 20070101, end: 20080226
  3. RANITIDINE [Concomitant]
     Route: 048
     Dates: start: 20080227, end: 20080227
  4. TUMS [Concomitant]
     Dosage: FREQ:AFTER EVERY MEAL
     Route: 048
     Dates: start: 20080201
  5. PANTOPRAZOLE SODIUM [Concomitant]
     Route: 048
     Dates: start: 20080229, end: 20080301
  6. NEXIUM [Concomitant]
     Route: 048
     Dates: start: 20080303
  7. PRIMPERAN INJ [Concomitant]
     Route: 048
     Dates: start: 20080303
  8. EUTIROX [Concomitant]
     Route: 048
  9. MAALOX [Concomitant]
     Indication: HYPERCHLORHYDRIA
     Dosage: TEXT:1 OR 2 SPOONS-FREQ:EVERY 3 HOURS
     Route: 048
     Dates: start: 20080303
  10. KYTRIL [Concomitant]
     Indication: NAUSEA
  11. ALL OTHER THERAPEUTIC PRODUCTS [Concomitant]
     Indication: ANOREXIA
  12. ALL OTHER THERAPEUTIC PRODUCTS [Concomitant]
     Indication: WEIGHT DECREASED
  13. ALL OTHER THERAPEUTIC PRODUCTS [Concomitant]
     Route: 048
     Dates: start: 20080303

REACTIONS (11)
  - ANOREXIA [None]
  - ASTHENIA [None]
  - BACK PAIN [None]
  - MALAISE [None]
  - MUSCLE SPASMS [None]
  - MYALGIA [None]
  - PLEURISY [None]
  - RASH MACULAR [None]
  - RESPIRATORY FAILURE [None]
  - SKIN INJURY [None]
  - WEIGHT DECREASED [None]
